FAERS Safety Report 25800021 (Version 4)
Quarter: 2025Q4

REPORT INFORMATION
  Report Type: Report from Study
  Country: EU (occurrence: EU)
  Receive Date: 20250914
  Receipt Date: 20251029
  Transmission Date: 20260118
  Serious: Yes (Hospitalization, Other)
  Sender: ABBVIE
  Company Number: EU-ABBVIE-6457732

PATIENT
  Age: 79 Year
  Sex: Male

DRUGS (25)
  1. FOSCARBIDOPA\FOSLEVODOPA [Suspect]
     Active Substance: FOSCARBIDOPA\FOSLEVODOPA
     Indication: Parkinson^s disease
     Dosage: CRN: 0.25ML7H; CR: 0.51ML/H; CRH: 0.52ML/H; ED: 0.2ML
     Route: 058
     Dates: start: 20241112
  2. FOSCARBIDOPA\FOSLEVODOPA [Suspect]
     Active Substance: FOSCARBIDOPA\FOSLEVODOPA
     Dosage: CR: 0.51 ML/H, CRH: 0.52 ML/H, CRN: 0.25 ML/H, ED: 0.20 ML.
     Route: 058
  3. FOSCARBIDOPA\FOSLEVODOPA [Suspect]
     Active Substance: FOSCARBIDOPA\FOSLEVODOPA
     Dosage: 2400 MG/10 ML + 120 MG/10 ML?NIGHT (10 P.M. - 6 A.M.): PUMP RATE 0.32/H.?DAY (6 A.M. - 10 P.M.): ...
     Route: 058
  4. Bisacondyl sanavita [Concomitant]
     Indication: Product used for unknown indication
     Dosage: FREQUENCY: AS NEEDED DAILY. DOSAGE; UP TO 1 TIME 1 SUPPOSITORY.
     Route: 054
  5. INNOHEP [Concomitant]
     Active Substance: TINZAPARIN SODIUM
     Indication: Product used for unknown indication
     Dosage: 4500 ANTI- XA I.E 0.45 ML?FREQUENCY- DAILY, DOSAGE-0-1-0 SYRINGE
     Route: 058
  6. ENEMA (SODIUM PHOSPHATE, DIBASIC\SODIUM PHOSPHATE, MONOBASIC) [Concomitant]
     Active Substance: SODIUM PHOSPHATE, DIBASIC\SODIUM PHOSPHATE, MONOBASIC
     Indication: Product used for unknown indication
     Dosage: 1X SALINIC, FREQUENCY: AS NEEDED DAILY, DOSAGE: UP TO 3 TIMES 1 ENEMA EACH
  7. POLYETHYLENE GLYCOL 3350\POTASSIUM CHLORIDE\SODIUM BICARBONATE\SODIUM [Concomitant]
     Active Substance: POLYETHYLENE GLYCOL 3350\POTASSIUM CHLORIDE\SODIUM BICARBONATE\SODIUM CHLORIDE
     Indication: Product used for unknown indication
     Dosage: FREQUENCY: AS NEEDED DAILY, DOSAGE: UP TO 3 TIMES 1 EACH SACHET
     Route: 048
  8. METAMIZOLE SODIUM [Concomitant]
     Active Substance: METAMIZOLE SODIUM
     Indication: Product used for unknown indication
     Dosage: FREQUENCY: DAILY, DOSAGE: 4 TIMES A DAY
     Route: 048
  9. METAMIZOLE SODIUM [Concomitant]
     Active Substance: METAMIZOLE SODIUM
     Indication: Product used for unknown indication
     Dosage: FREQUENCY: AS NEEDED DAILY , DOSAGE: UP TO 4 TIMES 1 SACHET DAY
     Route: 048
  10. PIRITRAMIDE [Concomitant]
     Active Substance: PIRITRAMIDE
     Indication: Product used for unknown indication
     Route: 058
  11. ASPIRIN [Concomitant]
     Active Substance: ASPIRIN
     Indication: Product used for unknown indication
     Dosage: FREQUENCY: DAILY, DOSAGE: 1 TIME A DAY IN MORNING
     Route: 048
  12. VITAMIN B6 [Concomitant]
     Active Substance: PYRIDOXINE HYDROCHLORIDE
     Indication: Product used for unknown indication
     Dosage: FREQUENCY: DAILY, DOSAGE:1 TIME A DAY IN MORNING
     Route: 048
  13. VITAMIN B12 [Concomitant]
     Active Substance: CYANOCOBALAMIN
     Indication: Product used for unknown indication
     Dosage: FREQUENCY: DAILY, DOSAGE: 1 TIME A DAY IN MORNING
     Route: 048
  14. CHOLECALCIFEROL [Concomitant]
     Active Substance: CHOLECALCIFEROL
     Indication: Product used for unknown indication
     Dosage: 20000N I.E, FREQUENCY: EVERY 7TH DAY, DOSAGE: 1 TIME 1
     Route: 048
  15. FERRO-SANOL DUODENAL [Concomitant]
     Active Substance: FERROUS GLYCINE SULFATE
     Indication: Product used for unknown indication
     Dosage: FREQUENCY: DAILY, DOSAGE: 1 TIME A DAY AT NIGHT
     Route: 048
  16. MIRABEGRON [Concomitant]
     Active Substance: MIRABEGRON
     Indication: Product used for unknown indication
     Dosage: FREQUENCY: DAILY?DOSAGE: 19:00 1
     Route: 048
  17. Escitalex [Concomitant]
     Indication: Product used for unknown indication
     Dosage: FREQUENCY: DAILY, DOSAGE:07:00 1
     Route: 048
  18. PANTOPRAZOLE [Concomitant]
     Active Substance: PANTOPRAZOLE
     Indication: Product used for unknown indication
     Dosage: A1 PHARMA, FREQUENCY: DAILY, DOSAGE: 1 TIME A DAY IN MORNING
     Route: 048
  19. Folson [Concomitant]
     Indication: Product used for unknown indication
     Dosage: FREQUENCY: DAILY, DOSAGE: 1 TIME A DAY IN MORNING
     Route: 048
  20. LACTULOSE [Concomitant]
     Active Substance: LACTULOSE
     Indication: Product used for unknown indication
     Dosage: 667 G/L, FREQUENCY: DAILY, DOSAGE: 10-10-10
     Route: 048
  21. Regulax picosulfat [Concomitant]
     Indication: Product used for unknown indication
     Dosage: 7.23 MG/ML, FREQUENCY: AS NEEDED DAILY, DOSAGE: UP TO 14 DROPS
     Route: 048
  22. ROTIGOTINE [Concomitant]
     Active Substance: ROTIGOTINE
     Indication: Product used for unknown indication
     Dosage: 24 H, FREQUENCY: DAILY, DOSAGE: 1 TIME IN THE MORNING.  ROA: PATCH
     Route: 062
  23. ROTIGOTINE [Concomitant]
     Active Substance: ROTIGOTINE
     Indication: Product used for unknown indication
     Dosage: 24 H, FREQUENCY: DAILY, DOSAGE: 1 TIME IN THE MORNING. ROA: PATCH
     Route: 062
  24. TILIDINE [Concomitant]
     Active Substance: TILIDINE
     Indication: Product used for unknown indication
     Dosage: 100 MG/ 8MG, FREQUENCY: DAILY, DOSAGE: TWICE A DAY AT MORNING AND AT NIGHT.
     Route: 048
     Dates: end: 20251008
  25. MELATONIN [Concomitant]
     Active Substance: MELATONIN
     Indication: Product used for unknown indication
     Dosage: FREQUENCY: DAILY, DOSAGE: ONE TIME AT NIGHT
     Route: 048

REACTIONS (34)
  - Unresponsive to stimuli [Not Recovered/Not Resolved]
  - Device loosening [Unknown]
  - Fall [Not Recovered/Not Resolved]
  - Cervical vertebral fracture [Not Recovered/Not Resolved]
  - Hyperhidrosis [Not Recovered/Not Resolved]
  - Cerebrovascular accident [Not Recovered/Not Resolved]
  - Device issue [Unknown]
  - Device power source issue [Unknown]
  - Hypokinesia [Unknown]
  - Dystonia [Unknown]
  - Head injury [Unknown]
  - Spinal column injury [Unknown]
  - Dysarthria [Unknown]
  - Dysstasia [Unknown]
  - Therapeutic product effect incomplete [Unknown]
  - Drug ineffective [Unknown]
  - Bedridden [Unknown]
  - Rapid eye movements sleep abnormal [Unknown]
  - Hallucination [Unknown]
  - Dysphagia [Unknown]
  - Mobility decreased [Unknown]
  - Muscle rigidity [Unknown]
  - Apraxia [Unknown]
  - Tremor [Unknown]
  - Gaze palsy [Unknown]
  - Microangiopathy [Unknown]
  - Dysphagia [Unknown]
  - Progressive supranuclear palsy [Unknown]
  - Vertebral artery perforation [Unknown]
  - Reduced facial expression [Unknown]
  - Extensor plantar response [Unknown]
  - Gait disturbance [Unknown]
  - Pneumonia [Unknown]
  - Nervous system disorder [Unknown]

NARRATIVE: CASE EVENT DATE: 20250101
